FAERS Safety Report 4466014-0 (Version None)
Quarter: 2004Q3

REPORT INFORMATION
  Report Type: 
  Country: None (occurrence: None)
  Receive Date: 20040902
  Receipt Date: 20040902
  Transmission Date: 20050211
  Serious: Yes (Death, Hospitalization)
  Sender: FDA-Public Use
  Company Number: None

PATIENT
  Sex: Male

DRUGS (15)
  1. STAVUDINE 20 MG [Suspect]
     Indication: URTICARIA
     Dosage: 20 MG BID ORAL
     Route: 048
     Dates: start: 20030702, end: 20040617
  2. DIETEX [Concomitant]
  3. SODIUM BICARBONATE [Concomitant]
  4. NEPHROCAPS [Concomitant]
  5. ASPIRIN [Concomitant]
  6. BIOCEPT [Concomitant]
  7. ACYCLOVIR [Concomitant]
  8. VIDEX [Concomitant]
  9. VANCOMYCIN ORAL [Concomitant]
  10. CLONIDINE HCL [Concomitant]
  11. IMODIUM [Concomitant]
  12. APAP TAB [Concomitant]
  13. GENERLAC [Concomitant]
  14. HUMALOG MIX 75/25 [Concomitant]
  15. MEGACE [Concomitant]

REACTIONS (1)
  - LACTIC ACIDOSIS [None]
